FAERS Safety Report 16778037 (Version 2)
Quarter: 2020Q2

REPORT INFORMATION
  Report Type: Spontaneous
  Country: US (occurrence: US)
  Receive Date: 20190905
  Receipt Date: 20200417
  Transmission Date: 20200713
  Serious: No
  Sender: FDA-Public Use
  Company Number: US-ELI_LILLY_AND_COMPANY-US201908007642

PATIENT
  Sex: Female
  Weight: 58.96 kg

DRUGS (1)
  1. EMGALITY [Suspect]
     Active Substance: GALCANEZUMAB-GNLM
     Indication: ABDOMINAL MIGRAINE
     Dosage: UNK, UNKNOWN
     Route: 065
     Dates: start: 20190318

REACTIONS (2)
  - Off label use [Unknown]
  - Constipation [Recovered/Resolved]
